FAERS Safety Report 7294151-4 (Version None)
Quarter: 2011Q1

REPORT INFORMATION
  Report Type: 
  Country: None (occurrence: None)
  Receive Date: 20110204
  Receipt Date: 20110121
  Transmission Date: 20110831
  Serious: Yes (Hospitalization)
  Sender: FDA-Public Use
  Company Number: 007312

PATIENT
  Sex: Male
  Weight: 85.2762 kg

DRUGS (11)
  1. CARBAMAZEPINE [Concomitant]
  2. CIMZIA [Suspect]
     Indication: CROHN'S DISEASE
     Dosage: 400 MG 1X/MONTH SUBCUTANEOUS; 200 MG  1X/MONTH SUBCUTANEOS
     Route: 058
     Dates: start: 20090609
  3. VITAMIN D [Concomitant]
  4. OXYCONTIN [Concomitant]
  5. LEVOTHYROXINE [Concomitant]
  6. CALCIUM [Concomitant]
  7. SIMVASTATIN [Concomitant]
  8. AMITRIPTYLINE HCL [Concomitant]
  9. LEXAPRO [Concomitant]
  10. PENTASA [Concomitant]
  11. PENTASA [Concomitant]

REACTIONS (32)
  - FATIGUE [None]
  - GASTROINTESTINAL HAEMORRHAGE [None]
  - VASCULAR CALCIFICATION [None]
  - SMALL INTESTINAL OBSTRUCTION [None]
  - HEART RATE INCREASED [None]
  - TREMOR [None]
  - BLOOD ALBUMIN DECREASED [None]
  - OSTEOPENIA [None]
  - OSTEOARTHRITIS [None]
  - SPINAL COMPRESSION FRACTURE [None]
  - DEEP VEIN THROMBOSIS [None]
  - COAGULOPATHY [None]
  - OEDEMA PERIPHERAL [None]
  - DEPRESSION [None]
  - JOINT SPRAIN [None]
  - HAEMORRHAGIC ANAEMIA [None]
  - ANASTOMOTIC STENOSIS [None]
  - ECCHYMOSIS [None]
  - CONTUSION [None]
  - BACK PAIN [None]
  - VITAMIN K DEFICIENCY [None]
  - CROHN'S DISEASE [None]
  - CONDITION AGGRAVATED [None]
  - RECTAL HAEMORRHAGE [None]
  - DIZZINESS [None]
  - LIMB INJURY [None]
  - MALABSORPTION [None]
  - MALNUTRITION [None]
  - INTERNATIONAL NORMALISED RATIO INCREASED [None]
  - PAIN IN EXTREMITY [None]
  - FALL [None]
  - ANAEMIA OF CHRONIC DISEASE [None]
